FAERS Safety Report 21016042 (Version 1)
Quarter: 2022Q2

REPORT INFORMATION
  Report Type: Spontaneous
  Country: TN (occurrence: TN)
  Receive Date: 20220628
  Receipt Date: 20220628
  Transmission Date: 20220720
  Serious: Yes (Death, Hospitalization)
  Sender: FDA-Public Use
  Company Number: TN-STRIDES ARCOLAB LIMITED-2022SP007809

PATIENT
  Age: 33 Year
  Sex: Male

DRUGS (4)
  1. HALOPERIDOL [Suspect]
     Active Substance: HALOPERIDOL
     Indication: Schizophrenia
     Dosage: 50 MILLIGRAM/ 3 MONTHS (INJECTION); HALOPERIDOL DECANOATE
     Route: 065
  2. HALOPERIDOL [Suspect]
     Active Substance: HALOPERIDOL
     Indication: Antipsychotic therapy
     Dosage: 5 MILLIGRAM/ DAY (TABLET) ONE TABLET PER DAY; HALOPERIDOL
     Route: 065
  3. CLONAZEPAM [Suspect]
     Active Substance: CLONAZEPAM
     Indication: Antipsychotic therapy
     Dosage: 2 MILLIGRAM/ DAY (ONE TABLET PER DAY)
     Route: 065
  4. TEGRETOL [Concomitant]
     Active Substance: CARBAMAZEPINE
     Indication: Product used for unknown indication
     Dosage: 200 MILLIGRAM/ 0.5 DAY ONE TABLET 200MG TWICE A DAY
     Route: 065

REACTIONS (2)
  - Pulmonary embolism [Fatal]
  - Visceral congestion [Unknown]
